FAERS Safety Report 17937262 (Version 1)
Quarter: 2020Q2

REPORT INFORMATION
  Report Type: Spontaneous
  Country: IE (occurrence: IE)
  Receive Date: 20200624
  Receipt Date: 20200624
  Transmission Date: 20200714
  Serious: Yes (Hospitalization)
  Sender: FDA-Public Use
  Company Number: IE-TEVA-2020-IE-1790089

PATIENT
  Sex: Female

DRUGS (3)
  1. LINEZOLID (G) [Suspect]
     Active Substance: LINEZOLID
     Route: 048
  2. ESOMEPRAZOLE (G) [Interacting]
     Active Substance: ESOMEPRAZOLE
     Route: 065
  3. CORDARONE [Interacting]
     Active Substance: AMIODARONE HYDROCHLORIDE

REACTIONS (3)
  - Electrocardiogram QT prolonged [Unknown]
  - Drug interaction [Unknown]
  - Ventricular tachycardia [Unknown]
